FAERS Safety Report 7046184-0 (Version None)
Quarter: 2010Q4

REPORT INFORMATION
  Report Type: 
  Country: None (occurrence: None)
  Receive Date: 20101014
  Receipt Date: 20101013
  Transmission Date: 20110411
  Serious: Yes (Hospitalization)
  Sender: FDA-Public Use
  Company Number: A0886301A

PATIENT
  Sex: Male

DRUGS (3)
  1. ALLI [Suspect]
     Indication: WEIGHT LOSS DIET
     Route: 048
     Dates: start: 20090101
  2. METFORMIN [Concomitant]
  3. ANAPRIL [Concomitant]

REACTIONS (4)
  - ABDOMINAL PAIN [None]
  - DIVERTICULITIS [None]
  - DIVERTICULUM [None]
  - WHITE BLOOD CELL COUNT INCREASED [None]
